FAERS Safety Report 4860316-1 (Version None)
Quarter: 2005Q4

REPORT INFORMATION
  Report Type: 
  Country: None (occurrence: None)
  Receive Date: 20051219
  Receipt Date: 20051202
  Transmission Date: 20060501
  Serious: Yes (Other)
  Sender: FDA-Public Use
  Company Number: GB-ABBOTT-05P-167-0319326-00

PATIENT
  Sex: Female

DRUGS (2)
  1. HUMIRA [Suspect]
     Indication: DRUG USE FOR UNKNOWN INDICATION
     Route: 058
     Dates: start: 20050707
  2. ACETAMINOPHEN W/ CODEINE [Concomitant]
     Indication: ANALGESIC EFFECT
     Route: 048

REACTIONS (6)
  - DYSPNOEA [None]
  - HEADACHE [None]
  - INJECTION SITE SWELLING [None]
  - MUSCLE SPASMS [None]
  - NAUSEA [None]
  - VOMITING [None]
